FAERS Safety Report 10713606 (Version 1)
Quarter: 2015Q1

REPORT INFORMATION
  Report Type: Spontaneous
  Country: US (occurrence: US)
  Receive Date: 20150115
  Receipt Date: 20150115
  Transmission Date: 20150721
  Serious: No
  Sender: FDA-Public Use
  Company Number: US-009507513-1412USA004088

PATIENT

DRUGS (1)
  1. STERILE DILUENT [Suspect]
     Active Substance: WATER

REACTIONS (1)
  - Incorrect product storage [Unknown]
